FAERS Safety Report 8299817-5 (Version None)
Quarter: 2012Q2

REPORT INFORMATION
  Report Type: 
  Country: None (occurrence: None)
  Receive Date: 20120419
  Receipt Date: 20120419
  Transmission Date: 20120825
  Serious: Yes (Other)
  Sender: FDA-Public Use
  Company Number: None

PATIENT
  Sex: Female
  Weight: 107.5 kg

DRUGS (2)
  1. FENTANYL [Suspect]
     Dosage: 10ML/HR
     Route: 008
  2. BUPIVACAINE HCL [Concomitant]

REACTIONS (4)
  - MUSCULAR WEAKNESS [None]
  - HYPOTENSION [None]
  - FALL [None]
  - SOMNOLENCE [None]
